FAERS Safety Report 10206100 (Version 1)
Quarter: 2014Q2

REPORT INFORMATION
  Report Type: Spontaneous
  Country: CA (occurrence: None)
  Receive Date: 20140527
  Receipt Date: 20140527
  Transmission Date: 20141212
  Serious: Yes (Hospitalization)
  Sender: FDA-Public Use
  Company Number: None

PATIENT
  Age: 44 Year
  Sex: Female

DRUGS (1)
  1. LYRICA [Suspect]
     Indication: PSYCHOTIC DISORDER
     Route: 048
     Dates: start: 20100531, end: 20110701

REACTIONS (2)
  - Delirium [None]
  - Hallucination, auditory [None]
